FAERS Safety Report 19982821 (Version 1)
Quarter: 2021Q4

REPORT INFORMATION
  Report Type: Spontaneous
  Country: DE (occurrence: DE)
  Receive Date: 20211021
  Receipt Date: 20211021
  Transmission Date: 20220303
  Serious: Yes (Hospitalization, Other)
  Sender: FDA-Public Use
  Company Number: None

PATIENT
  Age: 39 Year
  Sex: Female

DRUGS (5)
  1. SERTRALINE [Suspect]
     Active Substance: SERTRALINE HYDROCHLORIDE
     Indication: Product used for unknown indication
     Dosage: 50 MILLIGRAM, QD
     Dates: start: 2019
  2. OXYCODONE [Suspect]
     Active Substance: OXYCODONE
     Indication: Product used for unknown indication
     Dosage: SINCE RECENTLY
     Dates: end: 20210115
  3. OXYCODONE [Suspect]
     Active Substance: OXYCODONE
     Dosage: SEIT 1,5 JAHREN
  4. TAPENTADOL [Suspect]
     Active Substance: TAPENTADOL
     Indication: Product used for unknown indication
     Dosage: TAGESDOSIS ZWISCHEN 100 UND 200MG; BEI AUFTRETEN DER UAW 100MG
     Dates: start: 20210116, end: 20210207
  5. PREGABALIN [Concomitant]
     Active Substance: PREGABALIN
     Dosage: 900 MILLIGRAM, QD
     Dates: start: 2017

REACTIONS (8)
  - Gaze palsy [Recovered/Resolved]
  - Seizure [Recovered/Resolved]
  - Vision blurred [Recovered/Resolved]
  - Muscle spasms [Recovered/Resolved]
  - Myoclonic epilepsy [Recovered/Resolved]
  - Disorientation [Recovered/Resolved]
  - Muscle twitching [Not Recovered/Not Resolved]
  - Amnestic disorder [Recovered/Resolved]

NARRATIVE: CASE EVENT DATE: 20210101
